FAERS Safety Report 8974738 (Version 1)
Quarter: 2012Q4

REPORT INFORMATION
  Report Type: 
  Country: US (occurrence: None)
  Receive Date: 20121218
  Receipt Date: 20121218
  Transmission Date: 20130627
  Serious: No
  Sender: FDA-Public Use
  Company Number: None

PATIENT
  Sex: Female

DRUGS (2)
  1. HYDROCORTISONE [Suspect]
     Dates: start: 2012
  2. HYDROCORTICONE [Suspect]
     Dosage: 1 TABLET BY MOUTH 3 TO 4 TIMES A DAY
     Route: 048
     Dates: start: 2012

REACTIONS (2)
  - Medication error [None]
  - Drug dispensing error [None]
